FAERS Safety Report 5213058-7 (Version None)
Quarter: 2007Q1

REPORT INFORMATION
  Report Type: 
  Country: None (occurrence: None)
  Receive Date: 20070119
  Receipt Date: 20070111
  Transmission Date: 20070707
  Serious: Yes (Hospitalization)
  Sender: FDA-Public Use
  Company Number: FR-ROCHE-466284

PATIENT
  Age: 47 Year
  Sex: Male
  Weight: 73 kg

DRUGS (5)
  1. FUZEON [Suspect]
     Indication: HIV INFECTION
     Route: 058
     Dates: start: 20060720, end: 20060720
  2. FUZEON [Suspect]
     Route: 058
     Dates: start: 20060723
  3. FUZEON [Suspect]
     Route: 058
     Dates: start: 20030615, end: 20030615
  4. TMC114 [Concomitant]
     Indication: HIV INFECTION
  5. TRUVADA [Concomitant]
     Indication: HIV INFECTION

REACTIONS (5)
  - ANGIOEDEMA [None]
  - HYPERSENSITIVITY [None]
  - MALAISE [None]
  - PALPITATIONS [None]
  - URTICARIA [None]
